FAERS Safety Report 7294733-X (Version None)
Quarter: 2011Q1

REPORT INFORMATION
  Report Type: 
  Country: None (occurrence: None)
  Receive Date: 20110207
  Receipt Date: 20110121
  Transmission Date: 20110831
  Serious: Yes (Hospitalization)
  Sender: FDA-Public Use
  Company Number: 2011-0196

PATIENT
  Age: 76 Year
  Sex: Male

DRUGS (17)
  1. SYMBIOCORT (BUDESONIDE W/FORMOTEROL FUMARATE) [Concomitant]
  2. CLONAZEPAM [Concomitant]
  3. APO-GO PFS (APO-GO) (APOMORPHINE HYDROCHLORIDE) (APOMORPHINE HYDROCHLO [Suspect]
  4. SINEMET [Concomitant]
  5. METAMIZOLE (METAMIZOLE) [Concomitant]
  6. SIMETICONE (DIMETICONE, ACTIVATED) [Concomitant]
  7. APO-GO PFS (APO-GO) (APOMORPHINE HYDROCHLORIDE) (APOMORPHINE HYDROCHLO [Suspect]
     Indication: PARKINSON'S DISEASE
     Dosage: SEE IMAGE
     Route: 058
     Dates: start: 20110104, end: 20110114
  8. APO-GO PFS (APO-GO) (APOMORPHINE HYDROCHLORIDE) (APOMORPHINE HYDROCHLO [Suspect]
     Indication: PARKINSON'S DISEASE
     Dosage: SEE IMAGE
     Route: 058
     Dates: start: 20101227, end: 20110103
  9. ASPIRIN [Concomitant]
  10. THEOPHYLLINE [Concomitant]
  11. TOLCAPONE (TOLCAPONE) [Concomitant]
  12. PIRIBEDIL (PIRIBEDIL) [Concomitant]
  13. LEVODOPA/BENSERAZIDE (MADOPAR /00349201/) [Concomitant]
  14. TORSEMIDE [Concomitant]
  15. PANTOPRAZOLE SODIUM [Concomitant]
  16. OXYCODONE/NALOXONE (ALL OTHER THERAPEUTIC PRODUCTS) [Concomitant]
  17. AMANTADINE HCL [Concomitant]

REACTIONS (6)
  - OEDEMA PERIPHERAL [None]
  - PRURITUS [None]
  - FLUSHING [None]
  - INFUSION SITE REACTION [None]
  - URTICARIA [None]
  - INFUSION SITE MASS [None]
